FAERS Safety Report 11364281 (Version 1)
Quarter: 2015Q3

REPORT INFORMATION
  Report Type: Spontaneous
  Country: US (occurrence: None)
  Receive Date: 20150810
  Receipt Date: 20150810
  Transmission Date: 20151125
  Serious: Yes (Life-Threatening)
  Sender: FDA-Public Use
  Company Number: None

PATIENT
  Age: 67 Year
  Sex: Female
  Weight: 95.26 kg

DRUGS (2)
  1. ESTROGEN [Concomitant]
     Active Substance: ESTRONE\SUS SCROFA OVARY
  2. TRAMADOL 50 MG ZYDUS [Suspect]
     Active Substance: TRAMADOL
     Indication: POSTOPERATIVE CARE
     Route: 048
     Dates: start: 20150604, end: 20150609

REACTIONS (1)
  - Seizure [None]

NARRATIVE: CASE EVENT DATE: 20150609
